FAERS Safety Report 4364925-8 (Version None)
Quarter: 2004Q2

REPORT INFORMATION
  Report Type: 
  Country: None (occurrence: None)
  Receive Date: 20040521
  Receipt Date: 20040428
  Transmission Date: 20050107
  Serious: Yes (Life-Threatening)
  Sender: FDA-Public Use
  Company Number: JP_040503117

PATIENT
  Age: 9 Year
  Sex: Male
  Weight: 30 kg

DRUGS (7)
  1. ONCOVIN [Suspect]
     Indication: ACUTE MYELOID LEUKAEMIA
     Dosage: 0.9 MG OTHER
     Route: 050
     Dates: start: 20031221, end: 20031221
  2. VANCOMYCIN [Suspect]
     Indication: ACUTE MYELOID LEUKAEMIA
     Dosage: 500 MG DAY
     Dates: start: 20031225, end: 20031231
  3. CYTARABINE [Concomitant]
  4. THERARUBICIN (PIRARUBICIN) [Concomitant]
  5. CEFPIRAMIDE SODIUM [Concomitant]
  6. LASIX [Concomitant]
  7. GLYCEOL [Concomitant]

REACTIONS (2)
  - CLOSTRIDIUM COLITIS [None]
  - RASH PRURITIC [None]
